FAERS Safety Report 4757872-0 (Version None)
Quarter: 2005Q3

REPORT INFORMATION
  Report Type: 
  Country: None (occurrence: None)
  Receive Date: 20050831
  Receipt Date: 20050824
  Transmission Date: 20060218
  Serious: Yes (Hospitalization)
  Sender: FDA-Public Use
  Company Number: BW-BRISTOL-MYERS SQUIBB COMPANY-13091228

PATIENT
  Age: 34 Year
  Sex: Female

DRUGS (3)
  1. EFAVIRENZ [Suspect]
  2. DIDANOSINE [Suspect]
  3. ZIDOVUDINE [Suspect]

REACTIONS (2)
  - LACTIC ACIDOSIS [None]
  - PANCREATITIS ACUTE [None]
